FAERS Safety Report 6226503-5 (Version None)
Quarter: 2009Q2

REPORT INFORMATION
  Report Type: 
  Country: None (occurrence: None)
  Receive Date: 20090612
  Receipt Date: 20090518
  Transmission Date: 20091009
  Serious: No
  Sender: FDA-Public Use
  Company Number: US-ABBOTT-09P-163-0574045-00

PATIENT
  Sex: Male
  Weight: 79.904 kg

DRUGS (4)
  1. HUMIRA [Suspect]
     Indication: CROHN'S DISEASE
     Route: 058
     Dates: start: 20081208
  2. AVODART [Concomitant]
     Indication: BLOOD PRESSURE
     Dosage: 150/12.5 MG
  3. COSOPT [Concomitant]
     Indication: GLAUCOMA
     Route: 031
  4. FLUOROMETHOLONE [Concomitant]
     Indication: DRUG USE FOR UNKNOWN INDICATION

REACTIONS (1)
  - DRUG DOSE OMISSION [None]
